FAERS Safety Report 9344789 (Version 1)
Quarter: 2013Q2

REPORT INFORMATION
  Report Type: Spontaneous
  Country: JP (occurrence: JP)
  Receive Date: 20130612
  Receipt Date: 20130612
  Transmission Date: 20140414
  Serious: Yes (Death, Life-Threatening, Other)
  Sender: FDA-Public Use
  Company Number: JP-PFIZER INC-2013171529

PATIENT
  Age: 55 Year
  Sex: Male

DRUGS (1)
  1. METHYLPREDNISOLONE [Suspect]
     Indication: SJOGREN^S SYNDROME
     Dosage: 45 MG DAILY

REACTIONS (2)
  - Respiratory failure [Fatal]
  - Disseminated cryptococcosis [Not Recovered/Not Resolved]
